FAERS Safety Report 15165128 (Version 1)
Quarter: 2018Q3

REPORT INFORMATION
  Report Type: Spontaneous
  Country: US (occurrence: US)
  Receive Date: 20180621
  Receipt Date: 20180621
  Transmission Date: 20181010
  Serious: Yes (Other)
  Sender: FDA-Public Use
  Company Number: None

PATIENT
  Age: 63 Year
  Sex: Female
  Weight: 60.75 kg

DRUGS (9)
  1. LANTUS [Concomitant]
     Active Substance: INSULIN GLARGINE
  2. CALCIUM [Concomitant]
     Active Substance: CALCIUM
  3. LAMOTRIGINE 100MG [Suspect]
     Active Substance: LAMOTRIGINE
     Dosage: ?          QUANTITY:30 TABLET(S);OTHER ROUTE:1/2 TAB FOR 8 DAYS THEN 1 TABLET DAILY T?
     Dates: start: 20180605
  4. MULTIPLE VITAMIN [Concomitant]
     Active Substance: VITAMINS
  5. FISH OIL [Concomitant]
     Active Substance: FISH OIL
  6. WELLBUTRIN [Concomitant]
     Active Substance: BUPROPION HYDROCHLORIDE
  7. D 3 [Concomitant]
  8. LAMOTRIGINE. [Concomitant]
     Active Substance: LAMOTRIGINE
  9. FLAX OIL [Concomitant]

REACTIONS (5)
  - Balance disorder [None]
  - Blood glucose increased [None]
  - Hyperphagia [None]
  - Therapy change [None]
  - Dizziness [None]

NARRATIVE: CASE EVENT DATE: 20180608
